FAERS Safety Report 5497576-2 (Version None)
Quarter: 2007Q4

REPORT INFORMATION
  Report Type: 
  Country: None (occurrence: None)
  Receive Date: 20071025
  Receipt Date: 20061211
  Transmission Date: 20080405
  Serious: No
  Sender: FDA-Public Use
  Company Number: A0631149A

PATIENT
  Sex: Female

DRUGS (2)
  1. ADVAIR DISKUS 100/50 [Suspect]
     Indication: DRUG USE FOR UNKNOWN INDICATION
     Route: 065
  2. NO CONCURRENT MEDICATION [Concomitant]

REACTIONS (1)
  - VISION BLURRED [None]
